FAERS Safety Report 5076734-5 (Version None)
Quarter: 2006Q3

REPORT INFORMATION
  Report Type: 
  Country: None (occurrence: None)
  Receive Date: 20060807
  Receipt Date: 20060724
  Transmission Date: 20061208
  Serious: Yes (Hospitalization)
  Sender: FDA-Public Use
  Company Number: ES200608000329

PATIENT
  Age: 69 Year
  Sex: Female

DRUGS (3)
  1. FORTEO [Suspect]
     Indication: OSTEOPOROSIS
     Dosage: 20 UG, DAILY (1/D)
     Dates: start: 20050601
  2. FORTEO PEN (FORTEO PEN) [Concomitant]
  3. VENTOLIN /00139501/ (SALBUTAMOL) [Concomitant]

REACTIONS (9)
  - ASTHMA [None]
  - BRONCHITIS [None]
  - CHOKING [None]
  - COLITIS [None]
  - DEHYDRATION [None]
  - DYSPHONIA [None]
  - ERYTHEMA [None]
  - LOSS OF CONSCIOUSNESS [None]
  - PYREXIA [None]
